FAERS Safety Report 5187464-3 (Version None)
Quarter: 2006Q4

REPORT INFORMATION
  Report Type: 
  Country: None (occurrence: None)
  Receive Date: 20061213
  Receipt Date: 20061206
  Transmission Date: 20070319
  Serious: Yes (Death)
  Sender: FDA-Public Use
  Company Number: 163-21880-06120268

PATIENT
  Age: 74 Year
  Sex: Male

DRUGS (13)
  1. REVLIMID [Suspect]
     Indication: PROSTATE CANCER METASTATIC
     Dosage: ORAL
     Route: 048
     Dates: end: 20060921
  2. TAXOTERE [Suspect]
     Indication: PROSTATE CANCER METASTATIC
     Dates: end: 20060912
  3. PHOSLO [Concomitant]
  4. LASIX [Concomitant]
  5. PREDNISONE TAB [Concomitant]
  6. RESTORIL [Concomitant]
  7. ALBUTEROL [Concomitant]
  8. ZOFRAN [Concomitant]
  9. DARBEPOETIN (DARBEPOETIN ALFA) [Concomitant]
  10. PREVACID [Concomitant]
  11. TYLENOL [Concomitant]
  12. MAALOX FAST BLOCKER [Concomitant]
  13. MORPHINE [Concomitant]

REACTIONS (7)
  - CANDIDIASIS [None]
  - HERPES SIMPLEX [None]
  - NEUTROPENIC SEPSIS [None]
  - ODYNOPHAGIA [None]
  - PERIRECTAL ABSCESS [None]
  - RENAL FAILURE ACUTE [None]
  - SMALL INTESTINAL OBSTRUCTION [None]
